FAERS Safety Report 6821405-5 (Version None)
Quarter: 2010Q3

REPORT INFORMATION
  Report Type: 
  Country: None (occurrence: None)
  Receive Date: 20100707
  Receipt Date: 20080918
  Transmission Date: 20110219
  Serious: No
  Sender: FDA-Public Use
  Company Number: US-PFIZER INC-2008078902

PATIENT
  Sex: Female
  Weight: 61.23 kg

DRUGS (4)
  1. ZOLOFT [Suspect]
     Indication: DEPRESSION
  2. ZOLOFT [Suspect]
     Indication: PANIC ATTACK
  3. XANAX [Concomitant]
  4. MOTRIN [Concomitant]

REACTIONS (1)
  - DRUG SCREEN POSITIVE [None]
